FAERS Safety Report 22062755 (Version 1)
Quarter: 2023Q1

REPORT INFORMATION
  Report Type: Report from Study
  Country: NL (occurrence: NL)
  Receive Date: 20230306
  Receipt Date: 20230306
  Transmission Date: 20230418
  Serious: Yes (Hospitalization)
  Sender: FDA-Public Use
  Company Number: NL-BEIGENE-BGN-2023-001473

PATIENT
  Age: 71 Year
  Sex: Male
  Weight: 89 kg

DRUGS (2)
  1. ZANIDATAMAB [Suspect]
     Active Substance: ZANIDATAMAB
     Indication: Oesophageal adenocarcinoma
     Dosage: 2400 MG Q3WK
     Route: 042
     Dates: start: 20230217
  2. CAPECITABINE [Suspect]
     Active Substance: CAPECITABINE
     Indication: Oesophageal adenocarcinoma
     Dosage: UNK, BID
     Route: 048
     Dates: start: 20230217

REACTIONS (1)
  - Malaise [Not Recovered/Not Resolved]

NARRATIVE: CASE EVENT DATE: 20230220
